FAERS Safety Report 12660142 (Version 1)
Quarter: 2016Q3

REPORT INFORMATION
  Report Type: Report from Study
  Country: US (occurrence: US)
  Receive Date: 20160817
  Receipt Date: 20160817
  Transmission Date: 20161109
  Serious: No
  Sender: FDA-Public Use
  Company Number: US-009507513-1608USA008830

PATIENT
  Age: 52 Year
  Sex: Female
  Weight: 148.3 kg

DRUGS (7)
  1. OPSUMIT [Concomitant]
     Active Substance: MACITENTAN
  2. PRINIVIL [Suspect]
     Active Substance: LISINOPRIL
     Indication: PRODUCT USED FOR UNKNOWN INDICATION
     Dosage: UNK
     Route: 048
     Dates: end: 201605
  3. TYVASO [Suspect]
     Active Substance: TREPROSTINIL
     Dosage: UNK
     Route: 055
  4. TYVASO [Suspect]
     Active Substance: TREPROSTINIL
     Dosage: UNK
     Route: 055
  5. TYVASO [Suspect]
     Active Substance: TREPROSTINIL
     Indication: PULMONARY ARTERIAL HYPERTENSION
     Dosage: 18-54 MICROGRAM, QID
     Route: 055
     Dates: start: 20160418
  6. ADCIRCA [Concomitant]
     Active Substance: TADALAFIL
  7. TYVASO [Suspect]
     Active Substance: TREPROSTINIL
     Dosage: 6 - 9 BREATHS
     Route: 055

REACTIONS (9)
  - Dizziness postural [Not Recovered/Not Resolved]
  - Dry mouth [Unknown]
  - Cough [Not Recovered/Not Resolved]
  - Flushing [Unknown]
  - Dyspnoea [Unknown]
  - Headache [Recovering/Resolving]
  - Fluid retention [Unknown]
  - Oedema peripheral [Recovering/Resolving]
  - Hypotension [Not Recovered/Not Resolved]

NARRATIVE: CASE EVENT DATE: 2016
